FAERS Safety Report 8125470-7 (Version None)
Quarter: 2012Q1

REPORT INFORMATION
  Report Type: 
  Country: None (occurrence: None)
  Receive Date: 20120209
  Receipt Date: 20120203
  Transmission Date: 20120608
  Serious: No
  Sender: FDA-Public Use
  Company Number: US-PFIZER INC-2012032003

PATIENT
  Sex: Male

DRUGS (3)
  1. LYRICA [Suspect]
     Dosage: UNK
  2. VISTARIL [Suspect]
     Dosage: UNK
  3. LOPID [Suspect]
     Dosage: UNK

REACTIONS (1)
  - HERNIA [None]
